FAERS Safety Report 18913021 (Version 1)
Quarter: 2021Q1

REPORT INFORMATION
  Report Type: Other
  Country: CA (occurrence: CA)
  Receive Date: 20210219
  Receipt Date: 20210219
  Transmission Date: 20210420
  Serious: Yes (Hospitalization, Disabling, Other)
  Sender: FDA-Public Use
  Company Number: CA-APOTEX-2021AP003179

PATIENT
  Age: 14 Year
  Sex: Female
  Weight: 58 kg

DRUGS (2)
  1. TRAMADOL. [Suspect]
     Active Substance: TRAMADOL
     Indication: TOOTHACHE
     Dosage: 37.5 MILLIGRAM
     Route: 048
  2. ACETAMINOPHEN. [Concomitant]
     Active Substance: ACETAMINOPHEN
     Indication: PRODUCT USED FOR UNKNOWN INDICATION
     Dosage: UNK
     Route: 065

REACTIONS (14)
  - Altered state of consciousness [Recovered/Resolved]
  - Hypoaesthesia [Recovered/Resolved]
  - Amnesia [Recovered/Resolved]
  - Paralysis [Recovered/Resolved]
  - Neurological symptom [Recovered/Resolved]
  - Sense of oppression [Recovered/Resolved]
  - Muscular weakness [Recovered/Resolved]
  - Chills [Recovered/Resolved]
  - Paraesthesia [Recovered/Resolved]
  - Respiratory arrest [Recovered/Resolved]
  - Panic reaction [Recovered/Resolved]
  - Vomiting [Recovered/Resolved]
  - Eye movement disorder [Recovered/Resolved]
  - Confusional state [Recovered/Resolved]
